FAERS Safety Report 17814636 (Version 3)
Quarter: 2020Q2

REPORT INFORMATION
  Report Type: Spontaneous
  Country: MY (occurrence: MY)
  Receive Date: 20200522
  Receipt Date: 20200530
  Transmission Date: 20200714
  Serious: Yes (Life-Threatening, Hospitalization, Other)
  Sender: FDA-Public Use
  Company Number: MY-CIPLA LTD.-2020MY03474

PATIENT

DRUGS (1)
  1. AMLODIPINE [Suspect]
     Active Substance: AMLODIPINE BESYLATE
     Dosage: 300 MG IN TOTAL
     Route: 048

REACTIONS (9)
  - Non-cardiogenic pulmonary oedema [Recovering/Resolving]
  - Hypotension [Recovered/Resolved]
  - Abdominal pain [Recovering/Resolving]
  - Dehydration [Recovered/Resolved]
  - Vomiting [Recovering/Resolving]
  - Acute kidney injury [Recovering/Resolving]
  - Hyperlactacidaemia [Recovered/Resolved]
  - Intentional overdose [Recovering/Resolving]
  - Dizziness [Recovering/Resolving]
